FAERS Safety Report 16118352 (Version 1)
Quarter: 2019Q1

REPORT INFORMATION
  Report Type: Spontaneous
  Country: GB (occurrence: GB)
  Receive Date: 20190326
  Receipt Date: 20190326
  Transmission Date: 20190418
  Serious: Yes (Other)
  Sender: FDA-Public Use
  Company Number: GB-ENDO PHARMACEUTICALS INC-2019-103131

PATIENT
  Age: 81 Year
  Sex: Male

DRUGS (1)
  1. XIAPEX [Suspect]
     Active Substance: COLLAGENASE CLOSTRIDIUM HISTOLYTICUM
     Indication: DUPUYTREN^S CONTRACTURE
     Dosage: UNK UNKNOWN, UNKNOWN
     Route: 026

REACTIONS (6)
  - Finger amputation [Recovered/Resolved]
  - Skin laceration [Recovered/Resolved]
  - Peripheral swelling [Recovered/Resolved]
  - Contusion [Recovered/Resolved]
  - Pain [Recovered/Resolved]
  - Limb fracture [Recovered/Resolved]
